FAERS Safety Report 15709232 (Version 1)
Quarter: 2018Q4

REPORT INFORMATION
  Report Type: Report from Study
  Country: CO (occurrence: CO)
  Receive Date: 20181211
  Receipt Date: 20181211
  Transmission Date: 20190205
  Serious: Yes (Hospitalization)
  Sender: FDA-Public Use
  Company Number: CO-BAYER-2018-214617

PATIENT
  Age: 35 Year
  Sex: Female

DRUGS (2)
  1. ADEMPAS [Suspect]
     Active Substance: RIOCIGUAT
     Indication: PULMONARY ARTERIAL HYPERTENSION
     Dosage: 1 DF, Q8HR
     Route: 048
     Dates: start: 20161030
  2. VENTAVIS [Suspect]
     Active Substance: ILOPROST
     Indication: PULMONARY ARTERIAL HYPERTENSION
     Dosage: 6 DF, QD
     Dates: start: 20181017, end: 2018

REACTIONS (2)
  - Hypotension [Not Recovered/Not Resolved]
  - Cardio-respiratory arrest [None]

NARRATIVE: CASE EVENT DATE: 20181120
